FAERS Safety Report 8032581-3 (Version None)
Quarter: 2012Q1

REPORT INFORMATION
  Report Type: 
  Country: None (occurrence: None)
  Receive Date: 20120105
  Receipt Date: 20111227
  Transmission Date: 20120608
  Serious: Yes (Other)
  Sender: FDA-Public Use
  Company Number: 022155

PATIENT
  Age: 74 Year
  Sex: Male

DRUGS (7)
  1. MOXIFLOXACIN HCL [Concomitant]
     Indication: CHOROIDAL NEOVASCULARISATION
  2. MOXIFLOXACIN HCL [Concomitant]
     Indication: AGE-RELATED MACULAR DEGENERATION
  3. MACUGEN [Suspect]
     Indication: CHOROIDAL NEOVASCULARISATION
     Dosage: 0.3 MG, INTRAOCULAR
     Route: 031
     Dates: start: 20081224, end: 20081224
  4. MACUGEN [Suspect]
     Indication: AGE-RELATED MACULAR DEGENERATION
     Dosage: 0.3 MG, INTRAOCULAR
     Route: 031
     Dates: start: 20081224, end: 20081224
  5. XYLCOAINE (LIDOCAINE HYDROCHLORIDE) [Concomitant]
  6. ISODINE (POVIDONE-IODINE) [Concomitant]
  7. MYDRIN P (PHENYLEPHRINE HYDROCHLORIDE, TROPICAMIDE) [Concomitant]

REACTIONS (2)
  - VISUAL ACUITY REDUCED [None]
  - RETINAL PIGMENT EPITHELIAL TEAR [None]
